FAERS Safety Report 8188586-5 (Version None)
Quarter: 2012Q1

REPORT INFORMATION
  Report Type: 
  Country: None (occurrence: None)
  Receive Date: 20120306
  Receipt Date: 20120224
  Transmission Date: 20120608
  Serious: Yes (Hospitalization)
  Sender: FDA-Public Use
  Company Number: US-BAXTER-2012BH005426

PATIENT
  Sex: Male

DRUGS (1)
  1. DIANEAL [Suspect]
     Indication: PERITONEAL DIALYSIS
     Route: 033
     Dates: start: 20111130

REACTIONS (4)
  - ANGIOEDEMA [None]
  - CARDIAC PROCEDURE COMPLICATION [None]
  - ATRIAL FIBRILLATION [None]
  - CHEST PAIN [None]
